FAERS Safety Report 8920624 (Version 1)
Quarter: 2020Q3

REPORT INFORMATION
  Report Type: Report from Study
  Country: CR (occurrence: CR)
  Receive Date: 20121121
  Receipt Date: 20121121
  Transmission Date: 20201104
  Serious: Yes (Death)
  Sender: FDA-Public Use
  Company Number: CR-ROCHE-1158007

PATIENT
  Age: 85 Year
  Sex: Female

DRUGS (1)
  1. IBANDRONIC ACID. [Suspect]
     Active Substance: IBANDRONIC ACID
     Indication: OSTEOPOROSIS
     Route: 065
     Dates: start: 20120922

REACTIONS (2)
  - Cerebrovascular accident [Fatal]
  - Fall [Fatal]

NARRATIVE: CASE EVENT DATE: 20121119
